FAERS Safety Report 5067288-8 (Version None)
Quarter: 2006Q3

REPORT INFORMATION
  Report Type: 
  Country: None (occurrence: None)
  Receive Date: 20060801
  Receipt Date: 20060727
  Transmission Date: 20061208
  Serious: Yes (Hospitalization)
  Sender: FDA-Public Use
  Company Number: US-MERCK-0607USA05547

PATIENT
  Age: 45 Year
  Sex: Female

DRUGS (11)
  1. MOBIC [Concomitant]
     Route: 065
  2. FOSAMAX [Suspect]
     Indication: OSTEOPOROSIS
     Route: 048
     Dates: start: 20060722, end: 20060701
  3. ZETIA [Concomitant]
     Route: 048
  4. PREMARIN [Concomitant]
     Route: 065
  5. VERAPAMIL [Concomitant]
     Route: 065
  6. XANAX [Concomitant]
     Route: 065
  7. PRILOSEC [Concomitant]
     Route: 065
  8. HYDROCODONE BITARTRATE [Concomitant]
     Route: 065
  9. DILTIAZEM HYDROCHLORIDE [Concomitant]
     Route: 065
  10. CARISOPRODOL [Concomitant]
     Route: 065
  11. ASPIRIN [Concomitant]
     Route: 065

REACTIONS (2)
  - ARTERIAL HAEMORRHAGE [None]
  - THROAT IRRITATION [None]
